FAERS Safety Report 8293534-3 (Version None)
Quarter: 2012Q2

REPORT INFORMATION
  Report Type: 
  Country: None (occurrence: None)
  Receive Date: 20120418
  Receipt Date: 20120314
  Transmission Date: 20120825
  Serious: Yes (Hospitalization, Other)
  Sender: FDA-Public Use
  Company Number: US-BAXTER-2011BH038704

PATIENT
  Sex: Male

DRUGS (4)
  1. DIANEAL [Suspect]
     Indication: PERITONEAL DIALYSIS
     Route: 033
     Dates: start: 20111121, end: 20111206
  2. DIANEAL LOW CALCIUM W/ DEXTROSE 1.5% [Suspect]
     Route: 033
     Dates: start: 20110101, end: 20111101
  3. DIANEAL LOW CALCIUM W/ DEXTROSE 1.5% [Suspect]
     Route: 033
     Dates: start: 20110401, end: 20110401
  4. DIANEAL LOW CALCIUM W/ DEXTROSE 1.5% [Suspect]
     Indication: PERITONEAL DIALYSIS
     Route: 033
     Dates: start: 20111114, end: 20111121

REACTIONS (10)
  - ANXIETY [None]
  - DYSPNOEA [None]
  - ARTHRALGIA [None]
  - MYALGIA [None]
  - POLYARTHRITIS [None]
  - PERITONITIS BACTERIAL [None]
  - MUSCULOSKELETAL PAIN [None]
  - WHITE BLOOD CELL COUNT INCREASED [None]
  - DISCOMFORT [None]
  - MALAISE [None]
